FAERS Safety Report 4786626-4 (Version None)
Quarter: 2005Q3

REPORT INFORMATION
  Report Type: 
  Country: None (occurrence: None)
  Receive Date: 20050927
  Receipt Date: 20050711
  Transmission Date: 20060218
  Serious: No
  Sender: FDA-Public Use
  Company Number: USA0507102403

PATIENT
  Age: 14 Year
  Sex: Female
  Weight: 68 kg

DRUGS (2)
  1. STRATTERA [Suspect]
     Indication: ATTENTION DEFICIT/HYPERACTIVITY DISORDER
     Dates: start: 20040201
  2. CONCERTA [Concomitant]

REACTIONS (1)
  - BREAST DISORDER [None]
